FAERS Safety Report 22109065 (Version 1)
Quarter: 2023Q1

REPORT INFORMATION
  Report Type: Report from Study
  Country: US (occurrence: US)
  Receive Date: 20230317
  Receipt Date: 20230317
  Transmission Date: 20230418
  Serious: Yes (Death)
  Sender: FDA-Public Use
  Company Number: US-MYLANLABS-2023M1027943

PATIENT
  Age: 34 Year
  Sex: Male

DRUGS (7)
  1. BORTEZOMIB [Suspect]
     Active Substance: BORTEZOMIB
     Indication: Plasmablastic lymphoma
     Dosage: 1.5 MILLIGRAM, CYCLE (RECEIVED DURING CYCLE 1)
     Route: 065
  2. BORTEZOMIB [Suspect]
     Active Substance: BORTEZOMIB
     Dosage: 2.1 MILLIGRAM, CYCLE (RECEIVED DURING CYCLE 1)
     Route: 065
  3. BORTEZOMIB [Suspect]
     Active Substance: BORTEZOMIB
     Dosage: 2.8 MILLIGRAM, CYCLE (RECEIVED DURING CYCLE 2)
     Route: 065
  4. OXALIPLATIN [Suspect]
     Active Substance: OXALIPLATIN
     Indication: Plasmablastic lymphoma
     Dosage: 210 MILLIGRAM, CYCLE (RECEIVED DURING CYCLE 1)
     Route: 065
  5. OXALIPLATIN [Suspect]
     Active Substance: OXALIPLATIN
     Dosage: 275 MILLIGRAM, CYCLE (RECEIVED DURING CYCLE 2)
     Route: 065
  6. CYTARABINE [Suspect]
     Active Substance: CYTARABINE
     Indication: Plasmablastic lymphoma
     Dosage: 2100 MILLIGRAM, CYCLE (RECEIVED ON DAY 1 AND..)
     Route: 065
  7. CYTARABINE [Suspect]
     Active Substance: CYTARABINE
     Dosage: 4200 MILLIGRAM, CYCLE (RECEIVED ON DAY 1 AND..)
     Route: 065

REACTIONS (2)
  - Disease progression [Fatal]
  - Drug ineffective [Fatal]
